FAERS Safety Report 15317646 (Version 4)
Quarter: 2019Q2

REPORT INFORMATION
  Report Type: Report from Study
  Country: CA (occurrence: CA)
  Receive Date: 20180824
  Receipt Date: 20190614
  Transmission Date: 20190711
  Serious: Yes (Hospitalization, Disabling, Other)
  Sender: FDA-Public Use
  Company Number: PHHY2018CA078121

PATIENT
  Age: 52 Year
  Sex: Female

DRUGS (1)
  1. GILENYA [Suspect]
     Active Substance: FINGOLIMOD HYDROCHLORIDE
     Indication: PRODUCT USED FOR UNKNOWN INDICATION
     Dosage: UNK
     Route: 048
     Dates: start: 20180620, end: 20190523

REACTIONS (4)
  - Ankle fracture [Unknown]
  - Secondary progressive multiple sclerosis [Not Recovered/Not Resolved]
  - Expanded disability status scale score increased [Unknown]
  - Gait inability [Unknown]

NARRATIVE: CASE EVENT DATE: 20180814
